FAERS Safety Report 18912603 (Version 1)
Quarter: 2021Q1

REPORT INFORMATION
  Report Type: Spontaneous
  Country: JP (occurrence: JP)
  Receive Date: 20210218
  Receipt Date: 20210218
  Transmission Date: 20210420
  Serious: Yes (Hospitalization)
  Sender: FDA-Public Use
  Company Number: JP-JNJFOC-A-CH2015-128171

PATIENT
  Age: 20 Year
  Sex: Female

DRUGS (6)
  1. OPSUMIT [Suspect]
     Active Substance: MACITENTAN
     Indication: PULMONARY ARTERIAL HYPERTENSION
     Dosage: 2.5 MG, QID
     Route: 048
     Dates: start: 20151106, end: 20151107
  2. OPSUMIT [Suspect]
     Active Substance: MACITENTAN
     Dosage: 2.5 MG, QID
     Route: 048
     Dates: start: 20151121
  3. OPSUMIT [Suspect]
     Active Substance: MACITENTAN
     Dosage: IN THE MORNING
     Route: 048
     Dates: start: 20170315, end: 20170823
  4. EPOPROSTENOL ACT [Suspect]
     Active Substance: EPOPROSTENOL
     Dosage: 58 NG/KG, PER MIN
     Route: 042
  5. ADEMPAS [Suspect]
     Active Substance: RIOCIGUAT
     Indication: PULMONARY ARTERIAL HYPERTENSION
     Dosage: 0.5 MG, UNK
     Route: 048
     Dates: start: 20151106, end: 20151108
  6. EPOPROSTENOL ACT [Suspect]
     Active Substance: EPOPROSTENOL
     Indication: PULMONARY ARTERIAL HYPERTENSION
     Dosage: 59 NG/KG, PER MIN
     Route: 042

REACTIONS (4)
  - Vomiting [Recovered/Resolved]
  - Pulmonary arterial hypertension [Recovered/Resolved]
  - Condition aggravated [Unknown]
  - Headache [Recovered/Resolved]

NARRATIVE: CASE EVENT DATE: 201510
